FAERS Safety Report 7632851-4 (Version None)
Quarter: 2011Q3

REPORT INFORMATION
  Report Type: 
  Country: None (occurrence: None)
  Receive Date: 20110725
  Receipt Date: 20110711
  Transmission Date: 20111222
  Serious: Yes (Other)
  Sender: FDA-Public Use
  Company Number: PHHY2011US62378

PATIENT
  Sex: Female

DRUGS (9)
  1. TOPROL-XL [Concomitant]
  2. PANTOPRAZOLE [Concomitant]
  3. PLAVIX [Concomitant]
  4. FLECAINIDE ACETATE [Concomitant]
  5. CALCIUM CARBONATE [Concomitant]
  6. MIACALCIN [Suspect]
     Route: 045
  7. SPIRONOLACTONE [Concomitant]
  8. RECLAST [Suspect]
     Dosage: 5 MG, UNK
     Route: 042
     Dates: start: 20101203
  9. FOSAMAX [Suspect]

REACTIONS (17)
  - CONSTIPATION [None]
  - HEADACHE [None]
  - BACK PAIN [None]
  - WEIGHT DECREASED [None]
  - URINARY TRACT INFECTION [None]
  - DISEASE PROGRESSION [None]
  - GASTRIC DILATATION [None]
  - PAIN [None]
  - OEDEMA MOUTH [None]
  - MALAISE [None]
  - DECREASED APPETITE [None]
  - DIZZINESS [None]
  - ABDOMINAL PAIN [None]
  - SPINAL FRACTURE [None]
  - COUGH [None]
  - NAUSEA [None]
  - ABDOMINAL DISTENSION [None]
